FAERS Safety Report 15732506 (Version 1)
Quarter: 2018Q4

REPORT INFORMATION
  Report Type: Spontaneous
  Country: US (occurrence: US)
  Receive Date: 20181217
  Receipt Date: 20181217
  Transmission Date: 20190205
  Serious: Yes (Other)
  Sender: FDA-Public Use
  Company Number: None

PATIENT
  Age: 58 Year
  Sex: Male
  Weight: 90 kg

DRUGS (13)
  1. LEVALBUTEROL. [Concomitant]
     Active Substance: LEVALBUTEROL
     Dates: start: 20181103, end: 20181130
  2. MEROPENEM. [Concomitant]
     Active Substance: MEROPENEM
     Dates: start: 20181107, end: 20181112
  3. DEXMEDETOMIDINE. [Suspect]
     Active Substance: DEXMEDETOMIDINE
     Indication: SEDATION
     Dosage: ?          OTHER FREQUENCY:CONTINUOUS;?
     Route: 041
     Dates: start: 20181106, end: 20181108
  4. HEPARIN [Concomitant]
     Active Substance: HEPARIN SODIUM
     Dates: start: 20181108, end: 20181115
  5. INSULIN LISPRO [Concomitant]
     Active Substance: INSULIN LISPRO
     Dates: start: 20181103, end: 20181123
  6. TICAGRELOR. [Concomitant]
     Active Substance: TICAGRELOR
     Dates: start: 20181106, end: 20181130
  7. DOBUTAMINE [Concomitant]
     Active Substance: DOBUTAMINE\DOBUTAMINE HYDROCHLORIDE
     Dates: start: 20181102, end: 20181113
  8. IPRATROPIUM [Concomitant]
     Active Substance: IPRATROPIUM
     Dates: start: 20181103, end: 20181130
  9. THIAMINE. [Concomitant]
     Active Substance: THIAMINE
     Dates: start: 20181102, end: 20181121
  10. FENTANYL. [Concomitant]
     Active Substance: FENTANYL
     Dates: start: 20181103, end: 20181114
  11. ASPIRIN. [Concomitant]
     Active Substance: ASPIRIN
     Dates: start: 20181102, end: 20181217
  12. DOCUSATE [Concomitant]
     Active Substance: DOCUSATE
     Dates: start: 20181107, end: 20181117
  13. FAMOTIDINE. [Concomitant]
     Active Substance: FAMOTIDINE
     Dates: start: 20181106, end: 20181121

REACTIONS (2)
  - Bradycardia [None]
  - Extrasystoles [None]

NARRATIVE: CASE EVENT DATE: 20181109
